FAERS Safety Report 5533433-0 (Version None)
Quarter: 2007Q4

REPORT INFORMATION
  Report Type: 
  Country: None (occurrence: None)
  Receive Date: 20071204
  Receipt Date: 20071129
  Transmission Date: 20080405
  Serious: Yes (Hospitalization)
  Sender: FDA-Public Use
  Company Number: JP-ASTRAZENECA-2007AP04738

PATIENT
  Age: 4 Year
  Sex: Female
  Weight: 19 kg

DRUGS (21)
  1. PULMICORT [Suspect]
     Indication: ASTHMA
     Route: 055
     Dates: start: 20070119
  2. ONON DRYSYRUP [Concomitant]
     Indication: ASTHMA
     Dosage: NUMBER OF SEPARATE DOSAGES UNKNOWN
     Route: 048
     Dates: start: 20051206, end: 20070329
  3. ONON DRYSYRUP [Concomitant]
     Dosage: NUMBER OF SEPARATE DOSAGES UNKNOWN
     Route: 048
     Dates: start: 20070530, end: 20070606
  4. ONON DRYSYRUP [Concomitant]
     Dosage: NUMBER OF SEPARATE DOSAGES UNKNOWN
     Route: 048
     Dates: start: 20070624, end: 20070628
  5. MEPTIN [Concomitant]
     Indication: ASTHMA
     Route: 055
     Dates: start: 20051115, end: 20070125
  6. MEPTIN [Concomitant]
     Dosage: AS NEEDED
     Route: 055
     Dates: start: 20070427, end: 20070427
  7. MEPTIN [Concomitant]
     Dosage: AS NEEDED
     Route: 055
     Dates: start: 20070530, end: 20070530
  8. INTAL [Concomitant]
     Indication: ASTHMA
     Route: 055
     Dates: start: 20051115, end: 20070125
  9. INTAL [Concomitant]
     Dosage: AS NEEDED
     Route: 055
     Dates: start: 20070427, end: 20070427
  10. XEBLEN [Concomitant]
     Indication: ASTHMA
     Dosage: NUMBER OF SEPARATE DOSAGES UNKNOWN
     Route: 048
     Dates: start: 20070120, end: 20070202
  11. XEBLEN [Concomitant]
     Indication: RHINITIS
     Dosage: NUMBER OF SEPARATE DOSAGES UNKNOWN
     Route: 048
     Dates: start: 20070120, end: 20070202
  12. XEBLEN [Concomitant]
     Dosage: NUMBER OF SEPARATE DOSAGES UNKNOWN
     Route: 048
     Dates: start: 20070401, end: 20070404
  13. XEBLEN [Concomitant]
     Dosage: NUMBER OF SEPARATE DOSAGES UNKNOWN
     Route: 048
     Dates: start: 20070401, end: 20070404
  14. XEBLEN [Concomitant]
     Dosage: NUMBER OF SEPARATE DOSAGES UNKNOWN
     Route: 048
     Dates: start: 20070510, end: 20070516
  15. XEBLEN [Concomitant]
     Dosage: NUMBER OF SEPARATE DOSAGES UNKNOWN
     Route: 048
     Dates: start: 20070510, end: 20070516
  16. XEBLEN [Concomitant]
     Dosage: NUMBER OF SEPARATE DOSAGES UNKNOWN
     Route: 048
     Dates: start: 20070530, end: 20070605
  17. XEBLEN [Concomitant]
     Dosage: NUMBER OF SEPARATE DOSAGES UNKNOWN
     Route: 048
     Dates: start: 20070530, end: 20070605
  18. XEBLEN [Concomitant]
     Dosage: NUMBER OF SEPARATE DOSAGES UNKNOWN
     Route: 048
     Dates: start: 20070624, end: 20070628
  19. XEBLEN [Concomitant]
     Dosage: NUMBER OF SEPARATE DOSAGES UNKNOWN
     Route: 048
     Dates: start: 20070624, end: 20070628
  20. XEBLEN [Concomitant]
     Dosage: NUMBER OF SEPARATE DOSAGES UNKNOWN
     Route: 048
     Dates: start: 20070723, end: 20070729
  21. XEBLEN [Concomitant]
     Dosage: NUMBER OF SEPARATE DOSAGES UNKNOWN
     Route: 048
     Dates: start: 20070723, end: 20070729

REACTIONS (1)
  - ASTHMA [None]
